FAERS Safety Report 23342564 (Version 1)
Quarter: 2023Q4

REPORT INFORMATION
  Report Type: Spontaneous
  Country: CA (occurrence: CA)
  Receive Date: 20231227
  Receipt Date: 20231227
  Transmission Date: 20240110
  Serious: Yes (Death, Other)
  Sender: FDA-Public Use
  Company Number: CA-FreseniusKabi-FK202320977

PATIENT

DRUGS (6)
  1. ETOPOSIDE [Suspect]
     Active Substance: ETOPOSIDE
     Indication: Bone marrow conditioning regimen
     Dosage: FORM OF ADMIN. NOT SPECIFIED?ROUTE OF ADMIN. UNKNOWN ( UNK )
  2. DEXAMETHASONE [Suspect]
     Active Substance: DEXAMETHASONE
     Indication: Bone marrow conditioning regimen
     Dosage: FORM OF ADMIN. NOT SPECIFIED?ROUTE OF ADMIN. UNKNOWN ( UNK )
  3. MELPHALAN [Suspect]
     Active Substance: MELPHALAN
     Indication: Bone marrow conditioning regimen
     Dosage: FORM OF ADMIN. NOT SPECIFIED?ROUTE OF ADMIN. UNKNOWN ( UNK )
  4. FILGRASTIM [Suspect]
     Active Substance: FILGRASTIM
     Indication: Haematopoietic stem cell mobilisation
     Dosage: ROUTE OF ADMIN. UNKNOWN ( UNK )
  5. CYCLOPHOSPHAMIDE [Suspect]
     Active Substance: CYCLOPHOSPHAMIDE
     Indication: Haematopoietic stem cell mobilisation
     Dosage: ROUTE OF ADMIN. INTRAVENOUS (NOT OTHERWISE SPECIFIED) ( INT )  ?FORM OF ADMIN. NOT SPECIFIED
  6. PYRIDOSTIGMINE BROMIDE [Suspect]
     Active Substance: PYRIDOSTIGMINE BROMIDE
     Indication: Myasthenia gravis
     Dosage: ROUTE OF ADMIN. UNKNOWN ( UNK ) ?FORM OF ADMIN. NOT SPECIFIED

REACTIONS (2)
  - Neoplasm progression [Fatal]
  - Off label use [Fatal]
